FAERS Safety Report 11866431 (Version 4)
Quarter: 2016Q1

REPORT INFORMATION
  Report Type: Spontaneous
  Country: JP (occurrence: JP)
  Receive Date: 20151224
  Receipt Date: 20160217
  Transmission Date: 20160526
  Serious: Yes (Death, Other)
  Sender: FDA-Public Use
  Company Number: JP-UCBSA-2015041845

PATIENT
  Age: 78 Year
  Sex: Male

DRUGS (7)
  1. KEPPRA [Suspect]
     Active Substance: LEVETIRACETAM
     Dosage: 1500 MG, 2X/DAY (BID)
     Route: 041
     Dates: start: 20151217, end: 20151217
  2. ABILIFY [Concomitant]
     Active Substance: ARIPIPRAZOLE
     Indication: PRODUCT USED FOR UNKNOWN INDICATION
     Dosage: DAILY DOSES: 6 MG
     Route: 048
     Dates: start: 201512, end: 20151213
  3. KEPPRA [Suspect]
     Active Substance: LEVETIRACETAM
     Indication: PARTIAL SEIZURES WITH SECONDARY GENERALISATION
     Dosage: 500 MG, 2X/DAY (BID)
     Route: 041
     Dates: start: 20151216, end: 20151216
  4. OMEGACIN [Concomitant]
     Active Substance: BIAPENEM
     Dosage: DAILY DOSE-0.6 MG
     Route: 041
     Dates: start: 20151217, end: 20151217
  5. ALEVIATIN [Concomitant]
     Active Substance: PHENYTOIN SODIUM
     Indication: SEIZURE
     Dosage: DAILLY DOSE: 250 MG
     Route: 042
     Dates: start: 20151216, end: 20151217
  6. OMEGACIN [Concomitant]
     Active Substance: BIAPENEM
     Indication: PRODUCT USED FOR UNKNOWN INDICATION
     Dosage: DAILY DOSE: 0.9 MG
     Route: 041
     Dates: start: 20151213, end: 20151216
  7. BISOLVON [Concomitant]
     Active Substance: BROMHEXINE HYDROCHLORIDE
     Indication: PRODUCT USED FOR UNKNOWN INDICATION
     Dosage: DAILY DOSE: 12 MG
     Route: 041
     Dates: start: 20151213, end: 20151217

REACTIONS (1)
  - Cerebral infarction [Fatal]

NARRATIVE: CASE EVENT DATE: 20151217
